FAERS Safety Report 6249251-4 (Version None)
Quarter: 2009Q2

REPORT INFORMATION
  Report Type: 
  Country: None (occurrence: None)
  Receive Date: 20090629
  Receipt Date: 20090619
  Transmission Date: 20091009
  Serious: Yes (Hospitalization, Other)
  Sender: FDA-Public Use
  Company Number: CA-MERCK-0905CAN00088

PATIENT
  Age: 59 Year
  Sex: Female

DRUGS (2)
  1. FOSAMAX [Suspect]
     Indication: OSTEOPOROSIS
     Route: 048
     Dates: start: 20060104, end: 20060428
  2. ALENDRONATE SODIUM [Suspect]
     Indication: OSTEOPOROSIS
     Route: 048
     Dates: start: 20060429, end: 20090325

REACTIONS (4)
  - ARTHRALGIA [None]
  - CHRONIC LYMPHOCYTIC LEUKAEMIA STAGE 0 [None]
  - FALL [None]
  - HIP FRACTURE [None]
